FAERS Safety Report 16566485 (Version 1)
Quarter: 2019Q3

REPORT INFORMATION
  Report Type: Spontaneous
  Country: DE (occurrence: DE)
  Receive Date: 20190712
  Receipt Date: 20190712
  Transmission Date: 20191004
  Serious: Yes (Hospitalization)
  Sender: FDA-Public Use
  Company Number: DE-PFIZER INC-2019292961

PATIENT
  Age: 75 Year
  Sex: Male

DRUGS (18)
  1. VALSARTAN. [Suspect]
     Active Substance: VALSARTAN
     Dosage: 160 MG, 2X/DAY (1-0-1-0)
  2. ESIDRIX [Suspect]
     Active Substance: HYDROCHLOROTHIAZIDE
     Dosage: UNK
  3. NITRENDIPIN [Suspect]
     Active Substance: NITRENDIPINE
     Dosage: 20 MG, 2X/DAY (1-0-1-0)
  4. DAXAS [Concomitant]
     Active Substance: ROFLUMILAST
     Dosage: 50 UG, 1X/DAY (1-0-0-0)
  5. CLOPIDOGREL [Concomitant]
     Active Substance: CLOPIDOGREL BISULFATE
     Dosage: 75 MG, 1X/DAY (1-0-0-0)
  6. MACROGOL [Concomitant]
     Active Substance: POLYETHYLENE GLYCOLS
     Dosage: UNK, 2X/DAY (1-0-1-0)
  7. PREGABALIN. [Suspect]
     Active Substance: PREGABALIN
     Dosage: 75 MG, 1X/DAY (1-0-0-0)
  8. FUROSEMIDE. [Suspect]
     Active Substance: FUROSEMIDE
     Dosage: 40 MG, 2X/DAY (1-1-0-0)
  9. URAPIDIL [Suspect]
     Active Substance: URAPIDIL
     Dosage: 60 MG, 3X/DAY (1-1-1-0)
  10. METOPROLOL. [Suspect]
     Active Substance: METOPROLOL
     Dosage: 95 MG, 2X/DAY (1-0-1-0)
  11. ACETYLSALICYLIC ACID [Concomitant]
     Active Substance: ASPIRIN
     Dosage: 100 MG, 1X/DAY (1-0-0-0)
  12. KALINOR [CITRIC ACID;POTASSIUM BICARBONATE;POTASSIUM CITRATE] [Concomitant]
     Active Substance: CITRIC ACID MONOHYDRATE\POTASSIUM BICARBONATE\POTASSIUM CITRATE
     Dosage: AFTER POTASSIUM LEVEL
  13. ACTRAPID [Concomitant]
     Active Substance: INSULIN HUMAN
     Dosage: NK IE, (12-2-4-0)
  14. PANTOPRAZOL [PANTOPRAZOLE] [Concomitant]
     Active Substance: PANTOPRAZOLE
     Dosage: 40 MG, 2X/DAY (1-0-1-0)
  15. L-THYROXIN [LEVOTHYROXINE SODIUM] [Concomitant]
     Dosage: 50 UG, 1X/DAY (1-0-0-0)
  16. AMIODARON [AMIODARONE] [Concomitant]
     Active Substance: AMIODARONE
     Dosage: 200 MG, 1X/DAY (1-0-0-0)
  17. CLONIDIN [Suspect]
     Active Substance: CLONIDINE
     Dosage: 150 MG, 2X/DAY (1-0-0-1)
  18. ATROVENT [Concomitant]
     Active Substance: IPRATROPIUM BROMIDE
     Dosage: UNK, 4X/DAY
     Route: 055

REACTIONS (3)
  - Dizziness [Unknown]
  - Syncope [Unknown]
  - Fall [Unknown]
